FAERS Safety Report 24761695 (Version 1)
Quarter: 2024Q4

REPORT INFORMATION
  Report Type: Report from Study
  Country: CO (occurrence: CO)
  Receive Date: 20241220
  Receipt Date: 20241220
  Transmission Date: 20250115
  Serious: Yes (Hospitalization)
  Sender: ABBVIE
  Company Number: CO-ABBVIE-6055694

PATIENT
  Age: 20 Year
  Sex: Male
  Weight: 60 kg

DRUGS (2)
  1. RINVOQ [Suspect]
     Active Substance: UPADACITINIB
     Indication: Dermatitis atopic
     Dosage: 30 MILLIGRAM?FORM STRENGTH: 15 MILLIGRAM?FILM COATED TABLET
     Route: 048
     Dates: start: 20240510, end: 20241018
  2. RINVOQ [Suspect]
     Active Substance: UPADACITINIB
     Indication: Dermatitis atopic
     Dosage: 30 MILLIGRAM?FORM STRENGTH: 15 MILLIGRAM?FILM COATED TABLET
     Route: 048
     Dates: start: 20241102

REACTIONS (4)
  - Dry skin [Recovered/Resolved]
  - Bacterial infection [Unknown]
  - Skin discharge [Recovered/Resolved]
  - Limb injury [Unknown]

NARRATIVE: CASE EVENT DATE: 20240101
